FAERS Safety Report 7951285-6 (Version None)
Quarter: 2011Q4

REPORT INFORMATION
  Report Type: 
  Country: None (occurrence: None)
  Receive Date: 20111128
  Receipt Date: 20111121
  Transmission Date: 20120403
  Serious: Yes (Other)
  Sender: FDA-Public Use
  Company Number: A0954069A

PATIENT
  Sex: Male

DRUGS (1)
  1. UREA PEROXIDE [Suspect]

REACTIONS (3)
  - DRUG ADMINISTRATION ERROR [None]
  - EAR PAIN [None]
  - DEAFNESS UNILATERAL [None]
